FAERS Safety Report 5762614-6 (Version None)
Quarter: 2008Q2

REPORT INFORMATION
  Report Type: 
  Country: None (occurrence: None)
  Receive Date: 20080520
  Receipt Date: 20070406
  Transmission Date: 20081010
  Serious: Yes (Other)
  Sender: FDA-Public Use
  Company Number: 06H-163-0307874-00

PATIENT
  Age: 51 Year
  Sex: Male
  Weight: 84.8226 kg

DRUGS (5)
  1. HYDROCORTISONE SODIUM SUCCINATE [Suspect]
     Indication: PAIN
     Dates: start: 20060217
  2. PEG-INTRON [Suspect]
     Indication: HEPATITIS C
     Dosage: 0.48 ML, ONCE EVERY WEEK, SUBCUTANEOUS
     Route: 058
     Dates: start: 20041104, end: 20050929
  3. REBETOL [Suspect]
     Indication: HEPATITIS C
     Dosage: 1200MG,DAILY, ORAL
     Route: 048
     Dates: start: 20041104, end: 20051006
  4. METFORMIN HCL [Concomitant]
  5. EFFEXOR [Concomitant]

REACTIONS (1)
  - HYPERGLYCAEMIA [None]
